FAERS Safety Report 9832446 (Version 1)
Quarter: 2014Q1

REPORT INFORMATION
  Report Type: Spontaneous
  Country: US (occurrence: US)
  Receive Date: 20140121
  Receipt Date: 20140121
  Transmission Date: 20141002
  Serious: No
  Sender: FDA-Public Use
  Company Number: US-009507513-1401USA008051

PATIENT
  Age: 17 Year
  Sex: Female
  Weight: 58.96 kg

DRUGS (1)
  1. NUVARING [Suspect]
     Indication: CONTRACEPTION
     Dosage: CONTINUOUSLY
     Route: 067
     Dates: start: 20131206

REACTIONS (3)
  - Metrorrhagia [Unknown]
  - Headache [Unknown]
  - Incorrect drug administration duration [Unknown]
